FAERS Safety Report 20691003 (Version 1)
Quarter: 2022Q2

REPORT INFORMATION
  Report Type: Report from Study
  Country: US (occurrence: None)
  Receive Date: 20220408
  Receipt Date: 20220408
  Transmission Date: 20220720
  Serious: Yes (Other)
  Sender: FDA-Public Use
  Company Number: 2022A137253

PATIENT
  Age: 30769 Day
  Sex: Female
  Weight: 57.6 kg

DRUGS (10)
  1. CALQUENCE [Suspect]
     Active Substance: ACALABRUTINIB
     Indication: Chronic lymphocytic leukaemia
     Route: 048
     Dates: start: 202011
  2. AMOXICILLIN [Concomitant]
     Active Substance: AMOXICILLIN
  3. VITAMIN D NOS/CALCIUM CARBONATE [Concomitant]
     Dosage: 600-400 MG
  4. VITAMIN D3 [Concomitant]
     Active Substance: CHOLECALCIFEROL
  5. CYCLOBENZAPRINE [Concomitant]
     Active Substance: CYCLOBENZAPRINE
  6. FEBUXOSTAT [Concomitant]
     Active Substance: FEBUXOSTAT
  7. LEVOTHYROXINE [Concomitant]
     Active Substance: LEVOTHYROXINE
  8. SUDAFED [Concomitant]
     Active Substance: PSEUDOEPHEDRINE HYDROCHLORIDE
  9. EX-LAX REGULAR STRENGTH STIMULANT LAXATIVE [Concomitant]
     Active Substance: SENNOSIDES
  10. ACYCLOVIR [Concomitant]
     Active Substance: ACYCLOVIR

REACTIONS (3)
  - Fall [Unknown]
  - Skin laceration [Unknown]
  - Haemorrhage [Unknown]

NARRATIVE: CASE EVENT DATE: 20220330
